FAERS Safety Report 17845483 (Version 2)
Quarter: 2020Q2

REPORT INFORMATION
  Report Type: Spontaneous
  Country: US (occurrence: US)
  Receive Date: 20200601
  Receipt Date: 20200628
  Transmission Date: 20200714
  Serious: Yes (Hospitalization)
  Sender: FDA-Public Use
  Company Number: US-JNJFOC-20200529681

PATIENT
  Age: 25 Year
  Sex: Female

DRUGS (2)
  1. METHAMPHETAMINE [Concomitant]
     Active Substance: METHAMPHETAMINE
     Indication: PHYSICAL ASSAULT
     Dosage: BEING FORCED TO INGEST ACETAMINOPHEN AND METHAMPHETAMINE
     Route: 048
  2. TYLENOL [Suspect]
     Active Substance: ACETAMINOPHEN
     Indication: PHYSICAL ASSAULT
     Dosage: FORCED TO INGEST A LARGE UNKNOWN AMOUNT OF ACETAMINOPHEN
     Route: 048

REACTIONS (4)
  - Blood pressure decreased [Recovered/Resolved]
  - Intentional overdose [Recovered/Resolved]
  - Heart rate increased [Recovered/Resolved]
  - Respiratory rate increased [Recovered/Resolved]
